FAERS Safety Report 15874341 (Version 1)
Quarter: 2019Q1

REPORT INFORMATION
  Report Type: Other
  Country: US (occurrence: US)
  Receive Date: 20190126
  Receipt Date: 20190126
  Transmission Date: 20190417
  Serious: No
  Sender: FDA-Public Use
  Company Number: US-ACORDA-ACO_152023_2018

PATIENT
  Age: 74 Year
  Sex: Female
  Weight: 89.8 kg

DRUGS (8)
  1. INFLUENZA [Concomitant]
     Active Substance: INFLUENZA VIRUS VACCINE
     Indication: INFLUENZA
     Dosage: UNK
     Route: 065
     Dates: start: 20091223
  2. INFLUENZA [Concomitant]
     Active Substance: INFLUENZA VIRUS VACCINE
     Dosage: UNK
     Route: 065
     Dates: start: 20140922
  3. METAMUCIL [Concomitant]
     Active Substance: PLANTAGO SEED
     Indication: PRODUCT USED FOR UNKNOWN INDICATION
     Dosage: 1 TABLESPOONFUL, ONCE DAILY, AS NEEDED
     Route: 048
     Dates: start: 20161116
  4. ADVIL [Concomitant]
     Active Substance: IBUPROFEN
     Indication: PRODUCT USED FOR UNKNOWN INDICATION
     Dosage: UNK
     Route: 048
     Dates: start: 20161116
  5. AMPYRA [Suspect]
     Active Substance: DALFAMPRIDINE
     Indication: GAIT DISTURBANCE
     Dosage: 10 MG, Q 12 HRS
     Route: 048
     Dates: start: 20170407
  6. AMPYRA [Suspect]
     Active Substance: DALFAMPRIDINE
     Indication: MULTIPLE SCLEROSIS
     Dosage: 10 MILLIGRAM, Q 12 HRS
     Route: 048
     Dates: end: 20181101
  7. OXYBUTYNIN. [Concomitant]
     Active Substance: OXYBUTYNIN CHLORIDE
     Indication: PRODUCT USED FOR UNKNOWN INDICATION
     Dosage: 5 MG
     Route: 065
  8. INFLUENZA [Concomitant]
     Active Substance: INFLUENZA VIRUS VACCINE
     Dosage: UNK
     Route: 065
     Dates: start: 20151001

REACTIONS (15)
  - Multiple sclerosis relapse [Unknown]
  - Limb discomfort [Unknown]
  - Peroneal nerve palsy [Unknown]
  - Cataract [Unknown]
  - Movement disorder [Unknown]
  - Drug ineffective [Unknown]
  - Hypoacusis [Unknown]
  - Stress urinary incontinence [Unknown]
  - Condition aggravated [Unknown]
  - Urinary incontinence [Unknown]
  - Relapsing-remitting multiple sclerosis [Unknown]
  - Pollakiuria [Unknown]
  - Fall [Unknown]
  - Posture abnormal [Unknown]
  - Therapy cessation [Unknown]

NARRATIVE: CASE EVENT DATE: 201810
